FAERS Safety Report 14718602 (Version 4)
Quarter: 2018Q2

REPORT INFORMATION
  Report Type: Report from Study
  Country: None (occurrence: US)
  Receive Date: 20180405
  Receipt Date: 20180522
  Transmission Date: 20180711
  Serious: Yes (Hospitalization)
  Sender: FDA-Public Use
  Company Number: US-ABBVIE-18K-163-2293333-00

PATIENT
  Age: 21 Year
  Sex: Female

DRUGS (4)
  1. HUMIRA [Suspect]
     Active Substance: ADALIMUMAB
     Route: 058
     Dates: start: 20180426
  2. HUMIRA [Suspect]
     Active Substance: ADALIMUMAB
     Indication: CROHN^S DISEASE
     Dosage: DAY 1 LOADING DOSE
     Route: 058
     Dates: start: 20180315, end: 20180315
  3. HUMIRA [Suspect]
     Active Substance: ADALIMUMAB
     Dosage: DAY 29
     Route: 058
     Dates: start: 20180412, end: 201804
  4. HUMIRA [Suspect]
     Active Substance: ADALIMUMAB
     Dosage: DAY 15
     Route: 058
     Dates: start: 20180329, end: 20180329

REACTIONS (6)
  - Infectious mononucleosis [Recovering/Resolving]
  - Crohn^s disease [Recovered/Resolved]
  - Loss of personal independence in daily activities [Unknown]
  - Rectal haemorrhage [Unknown]
  - Ovarian cyst [Recovering/Resolving]
  - Constipation [Unknown]

NARRATIVE: CASE EVENT DATE: 201803
